FAERS Safety Report 5959166-4 (Version None)
Quarter: 2008Q4

REPORT INFORMATION
  Report Type: 
  Country: None (occurrence: None)
  Receive Date: 20081120
  Receipt Date: 20080416
  Transmission Date: 20090506
  Serious: No
  Sender: FDA-Public Use
  Company Number: A0723185A

PATIENT
  Age: 75 Year
  Sex: Male

DRUGS (2)
  1. WELLBUTRIN SR [Suspect]
     Indication: DEPRESSION
     Dosage: 150MG THREE TIMES PER DAY
     Route: 048
  2. NONE [Concomitant]

REACTIONS (5)
  - CONSTIPATION [None]
  - DRUG INEFFECTIVE [None]
  - DRY MOUTH [None]
  - PRODUCT QUALITY ISSUE [None]
  - TINNITUS [None]
